FAERS Safety Report 20566210 (Version 2)
Quarter: 2022Q3

REPORT INFORMATION
  Report Type: Spontaneous
  Country: US (occurrence: US)
  Receive Date: 20220308
  Receipt Date: 20220704
  Transmission Date: 20221026
  Serious: Yes (Other)
  Sender: FDA-Public Use
  Company Number: US-BRISTOL-MYERS SQUIBB COMPANY-BMS-2022-035037

PATIENT
  Age: 71 Year
  Sex: Male

DRUGS (1)
  1. SPRYCEL [Suspect]
     Active Substance: DASATINIB
     Indication: Connective tissue neoplasm
     Route: 048
     Dates: start: 20220218

REACTIONS (4)
  - Peripheral swelling [Recovered/Resolved]
  - Testicular swelling [Recovered/Resolved]
  - Fatigue [Unknown]
  - Intentional product use issue [Unknown]
